FAERS Safety Report 19071450 (Version 1)
Quarter: 2021Q1

REPORT INFORMATION
  Report Type: Spontaneous
  Country: NL (occurrence: NL)
  Receive Date: 20210330
  Receipt Date: 20210330
  Transmission Date: 20210420
  Serious: Yes (Other)
  Sender: FDA-Public Use
  Company Number: NL-TEVA-2021-NL-1894581

PATIENT
  Age: 59 Year
  Sex: Female

DRUGS (10)
  1. CETIRIZINE [Suspect]
     Active Substance: CETIRIZINE HYDROCHLORIDE
     Indication: HYPERSENSITIVITY
  2. PANTOPRAZOL TABLET MSR 40MG / BRAND NAME NOT SPECIFIED [Concomitant]
     Active Substance: PANTOPRAZOLE
     Dosage: 40 MG (MILLIGRAM),THERAPY START DATE :ASKU,THERAPY END DATE :ASKU
  3. FENYTOINE TABLET 92MG (= 100MG NA?ZOUT) / DIPHANTOINE?Z  100 TABLET 92 [Concomitant]
     Dosage: 100 MG (MILLIGRAM),THERAPY START DATE :ASKU,THERAPY END DATE :ASKU
  4. BUDESONIDE INHALATIEPOEDER 400UG/DO / BUDESONIDE NOVOLIZER INHALPDR 40 [Concomitant]
     Dosage: 400 UG/DOSIS (MICROGRAM PER DOSIS),THERAPY START DATE :ASKU,THERAPY END DATE :ASKU
  5. CETIRIZINE [Suspect]
     Active Substance: CETIRIZINE HYDROCHLORIDE
     Indication: SEASONAL ALLERGY
     Dosage: 10 MILLIGRAM DAILY;
     Dates: start: 20210304, end: 20210305
  6. CLOBAZAM TABLET 10MG / BRAND NAME NOT SPECIFIED [Concomitant]
     Active Substance: CLOBAZAM
     Dosage: 10 MG (MILLIGRAM),THERAPY START DATE :ASKU,THERAPY END DATE :ASKU
  7. EZETIMIB TABLET 10MG / BRAND NAME NOT SPECIFIED [Concomitant]
     Dosage: 10 MG (MILLIGRAM),THERAPY START DATE :ASKU,THERAPY END DATE :ASKU
  8. SIMVASTATINE TABLET FO 40MG / BRAND NAME NOT SPECIFIED [Concomitant]
     Active Substance: SIMVASTATIN
     Dosage: 40 MG (MILLIGRAM),THERAPY START DATE :ASKU,THERAPY END DATE :ASKU
  9. CLOPIDOGREL TABLET   75MG / GREPID TABLET FILMOMHULD 75MG [Concomitant]
     Dosage: 75 MG (MILLIGRAM),THERAPY START DATE :ASKU,THERAPY END DATE :ASKU
  10. HYDROCHLOORTHIAZIDE TABLET 12,5MG / BRAND NAME NOT SPECIFIED [Concomitant]
     Active Substance: HYDROCHLOROTHIAZIDE
     Dosage: 12,5 MG (MILLIGRAM),THERAPY START DATE :ASKU,THERAPY END DATE :ASKU

REACTIONS (1)
  - Epilepsy [Recovering/Resolving]

NARRATIVE: CASE EVENT DATE: 20210304
